FAERS Safety Report 5002678-0 (Version None)
Quarter: 2006Q2

REPORT INFORMATION
  Report Type: 
  Country: None (occurrence: None)
  Receive Date: 20060510
  Receipt Date: 20060424
  Transmission Date: 20061013
  Serious: Yes (Congenital Anomaly)
  Sender: FDA-Public Use
  Company Number: 2005014928

PATIENT
  Sex: Male

DRUGS (2)
  1. ZYRTEC [Suspect]
     Indication: ILL-DEFINED DISORDER
     Dosage: ORAL
     Route: 048
  2. CLARITIN [Suspect]
     Indication: ILL-DEFINED DISORDER
     Dosage: ORAL
     Route: 048

REACTIONS (4)
  - CONGENITAL GENITAL MALFORMATION MALE [None]
  - CONGENITAL URETHRAL ANOMALY [None]
  - DRUG EXPOSURE DURING PREGNANCY [None]
  - URETHRAL STENOSIS [None]
